FAERS Safety Report 14068327 (Version 1)
Quarter: 2017Q4

REPORT INFORMATION
  Report Type: Spontaneous
  Country: US (occurrence: None)
  Receive Date: 20171010
  Receipt Date: 20171010
  Transmission Date: 20180321
  Serious: Yes (Hospitalization)
  Sender: FDA-Public Use
  Company Number: None

PATIENT
  Age: 21 Year
  Sex: Male
  Weight: 144.2 kg

DRUGS (3)
  1. METHOTREXATE. [Suspect]
     Active Substance: METHOTREXATE
     Dates: end: 20170915
  2. ONCASPAR [Suspect]
     Active Substance: PEGASPARGASE
     Dates: end: 20170824
  3. VINCRISTINE SULFATE. [Suspect]
     Active Substance: VINCRISTINE SULFATE
     Dates: end: 20170824

REACTIONS (12)
  - Fall [None]
  - Hepatotoxicity [None]
  - Hepatic failure [None]
  - Hepatic encephalopathy [None]
  - Coagulopathy [None]
  - Fatigue [None]
  - Asthenia [None]
  - Hepatic steatosis [None]
  - Ascites [None]
  - Hepatic cirrhosis [None]
  - Platelet count decreased [None]
  - Hepatomegaly [None]

NARRATIVE: CASE EVENT DATE: 20170928
